FAERS Safety Report 5676264-3 (Version None)
Quarter: 2008Q1

REPORT INFORMATION
  Report Type: 
  Country: None (occurrence: None)
  Receive Date: 20080321
  Receipt Date: 20080310
  Transmission Date: 20080703
  Serious: Yes (Other)
  Sender: FDA-Public Use
  Company Number: IE-AMGEN-US262667

PATIENT
  Age: 40 Year
  Sex: Female

DRUGS (1)
  1. ENBREL [Suspect]
     Indication: PSORIASIS
     Route: 058

REACTIONS (3)
  - HYPERSENSITIVITY [None]
  - PHARYNGEAL OEDEMA [None]
  - SWELLING FACE [None]
